FAERS Safety Report 10104247 (Version 2)
Quarter: 2014Q3

REPORT INFORMATION
  Report Type: Other
  Country: US (occurrence: US)
  Receive Date: 20140424
  Receipt Date: 20140722
  Transmission Date: 20150326
  Serious: Yes (Hospitalization, Other)
  Sender: FDA-Public Use
  Company Number: US-GSKPPD-2014GSK001396

PATIENT
  Age: 59 Year
  Sex: Male

DRUGS (5)
  1. ISOSORBIDE [Concomitant]
     Active Substance: ISOSORBIDE
     Dosage: DAILY
  2. ASPIRIN. [Concomitant]
     Active Substance: ASPIRIN
     Dosage: DAILY
  3. AVANDIA [Suspect]
     Active Substance: ROSIGLITAZONE MALEATE
     Indication: DIABETES MELLITUS
     Dosage: DAILY
     Route: 048
     Dates: start: 200309
  4. PRINIVIL [Concomitant]
     Active Substance: LISINOPRIL
     Dosage: DAILY
  5. LASIX [Concomitant]
     Active Substance: FUROSEMIDE
     Dosage: DAILY

REACTIONS (2)
  - Myocardial infarction [Recovered/Resolved]
  - Myocardial infarction [Recovered/Resolved]

NARRATIVE: CASE EVENT DATE: 20050214
